FAERS Safety Report 17082087 (Version 2)
Quarter: 2019Q4

REPORT INFORMATION
  Report Type: Report from Study
  Country: US (occurrence: US)
  Receive Date: 20191127
  Receipt Date: 20191219
  Transmission Date: 20200122
  Serious: Yes (Other)
  Sender: FDA-Public Use
  Company Number: NVSC2019US009310

PATIENT
  Sex: Female

DRUGS (3)
  1. PIQRAY [Suspect]
     Active Substance: ALPELISIB
     Indication: PRODUCT USED FOR UNKNOWN INDICATION
     Dosage: UNK
     Route: 048
  2. PIQRAY [Suspect]
     Active Substance: ALPELISIB
     Dosage: 200 MG, QD
     Route: 065
  3. PIQRAY [Suspect]
     Active Substance: ALPELISIB
     Dosage: 250 MG, QD (REDUCED DOSE)
     Route: 048

REACTIONS (7)
  - Metastases to liver [Unknown]
  - Abdominal discomfort [Unknown]
  - Dehydration [Unknown]
  - Vision blurred [Unknown]
  - Hyperglycaemia [Recovering/Resolving]
  - Diarrhoea [Unknown]
  - Blood sodium decreased [Recovered/Resolved]
